FAERS Safety Report 9867353 (Version 1)
Quarter: 2014Q1

REPORT INFORMATION
  Report Type: Spontaneous
  Country: BR (occurrence: BR)
  Receive Date: 20140204
  Receipt Date: 20140204
  Transmission Date: 20141002
  Serious: Yes (Other)
  Sender: FDA-Public Use
  Company Number: BR-ABBOTT-14X-020-1164911-00

PATIENT
  Age: 71 Year
  Sex: Female

DRUGS (6)
  1. RYTMONORM [Suspect]
     Indication: ARRHYTHMIA
     Dosage: HALF TABLET IN THE MORNING/ AT NIGHT
     Route: 048
     Dates: start: 2012, end: 201312
  2. RYTMONORM [Suspect]
     Dosage: MORNING, AFTERNOON AND NIGHT
     Route: 048
     Dates: start: 201312
  3. PRADAXA [Concomitant]
     Indication: CARDIAC DISORDER
     Route: 048
     Dates: start: 20131209
  4. PRADAXA [Concomitant]
     Indication: THROMBOSIS PROPHYLAXIS
  5. LOSARTAN [Concomitant]
     Indication: BLOOD PRESSURE MANAGEMENT
     Dosage: HALF TABLET EVERY 12 HOURS
     Route: 048
     Dates: start: 2012
  6. SIMVASTATIN [Concomitant]
     Indication: BLOOD CHOLESTEROL INCREASED
     Dosage: AFTER DINNER
     Route: 048
     Dates: start: 2012

REACTIONS (2)
  - Arrhythmia [Recovered/Resolved]
  - Fatigue [Recovered/Resolved]
